FAERS Safety Report 20381290 (Version 4)
Quarter: 2022Q1

REPORT INFORMATION
  Report Type: Report from Study
  Country: DK (occurrence: DK)
  Receive Date: 20220127
  Receipt Date: 20220322
  Transmission Date: 20220423
  Serious: Yes (Hospitalization, Other)
  Sender: FDA-Public Use
  Company Number: DK-BRISTOL-MYERS SQUIBB COMPANY-BMS-2022-011043

PATIENT
  Age: 54 Year
  Sex: Male
  Weight: 78.9 kg

DRUGS (5)
  1. NIVOLUMAB [Suspect]
     Active Substance: NIVOLUMAB
     Indication: Pancreatic carcinoma
     Dosage: 3 MILLIGRAM/KILOGRAM, Q2WK
     Route: 042
     Dates: start: 20210428, end: 20211227
  2. NIVOLUMAB [Suspect]
     Active Substance: NIVOLUMAB
     Indication: Cholangiocarcinoma
  3. IPILIMUMAB [Suspect]
     Active Substance: IPILIMUMAB
     Indication: Pancreatic carcinoma
     Dosage: 1 MILLIGRAM/KILOGRAM, Q6WK
     Route: 042
     Dates: start: 20210428, end: 20211227
  4. NIVOLUMAB [Suspect]
     Active Substance: NIVOLUMAB
     Indication: Pancreatic carcinoma
     Dosage: 3 MILLIGRAM/KILOGRAM, Q2WK
     Route: 042
     Dates: start: 20210428, end: 20211227
  5. NIVOLUMAB [Suspect]
     Active Substance: NIVOLUMAB
     Indication: Cholangiocarcinoma

REACTIONS (12)
  - Pyrexia [Unknown]
  - Pleural effusion [Unknown]
  - Hepatitis cholestatic [Not Recovered/Not Resolved]
  - Coma hepatic [Unknown]
  - Staphylococcal sepsis [Unknown]
  - Thrombocytopenia [Unknown]
  - Renal failure [Unknown]
  - Hepatic failure [Unknown]
  - Scrotal oedema [Unknown]
  - Oedema peripheral [Unknown]
  - Diabetes mellitus inadequate control [Unknown]
  - Ascites [Unknown]

NARRATIVE: CASE EVENT DATE: 20220118
